FAERS Safety Report 4597202-0 (Version None)
Quarter: 2005Q1

REPORT INFORMATION
  Report Type: 
  Country: None (occurrence: None)
  Receive Date: 20050301
  Receipt Date: 20050214
  Transmission Date: 20050727
  Serious: Yes (Other)
  Sender: FDA-Public Use
  Company Number: 2005-0007913

PATIENT
  Age: 43 Year
  Sex: Male
  Weight: 63 kg

DRUGS (3)
  1. HEPSERA [Suspect]
     Indication: HEPATITIS B
     Dosage: 10 MG, 1 IN 1 D, ORAL
     Route: 048
     Dates: start: 20040729, end: 20041116
  2. HEPSERA [Suspect]
     Indication: HEPATITIS B
     Dosage: 10 MG, 1 IN 1 D, ORAL
     Route: 048
     Dates: start: 20041207, end: 20041216
  3. ZEFFIX (LAMIVUDIINE) [Concomitant]

REACTIONS (9)
  - ASTHENIA [None]
  - CHEST DISCOMFORT [None]
  - HYPERHIDROSIS [None]
  - HYPERTENSION [None]
  - INTRAOCULAR PRESSURE INCREASED [None]
  - MALAISE [None]
  - MUSCLE CONTRACTURE [None]
  - PALPITATIONS [None]
  - VERTIGO [None]
